FAERS Safety Report 8010385 (Version 3)
Quarter: 2012Q4

REPORT INFORMATION
  Report Type: 
  Country: JP (occurrence: JP)
  Receive Date: 20110627
  Receipt Date: 20121008
  Transmission Date: 20130627
  Serious: Yes (Hospitalization)
  Sender: FDA-Public Use
  Company Number: JP-ROCHE-782984

PATIENT
  Age: 72 Year
  Sex: Female

DRUGS (25)
  1. ACTEMRA [Suspect]
     Indication: RHEUMATOID ARTHRITIS
     Dosage: FORM: INJECTION
     Route: 041
     Dates: start: 20081128, end: 20090804
  2. ACTEMRA [Suspect]
     Dosage: FORM: INJECTION
     Route: 041
     Dates: start: 20091013, end: 20091105
  3. ACTEMRA [Suspect]
     Dosage: FORM: INJECTION
     Route: 041
     Dates: start: 20091203, end: 20091203
  4. ACTEMRA [Suspect]
     Route: 041
     Dates: start: 20100107, end: 20100107
  5. ACTEMRA [Suspect]
     Dosage: FORM: INJECTION
     Route: 041
     Dates: start: 20100204, end: 20100204
  6. ACTEMRA [Suspect]
     Dosage: FORM: INJECTION
     Route: 041
     Dates: start: 20100304, end: 20100304
  7. ACTEMRA [Suspect]
     Route: 041
     Dates: start: 20100331, end: 20100331
  8. ACTEMRA [Suspect]
     Dosage: FORM: INJECTION
     Route: 041
     Dates: start: 20100426, end: 20100426
  9. ACTEMRA [Suspect]
     Dosage: FORM: INJECTION
     Route: 041
     Dates: start: 20100623, end: 20100623
  10. ACTEMRA [Suspect]
     Dosage: FORM: INJECTION
     Route: 041
     Dates: start: 20100721, end: 20100721
  11. ACTEMRA [Suspect]
     Dosage: FORM: INJECTION
     Route: 041
     Dates: start: 20100818, end: 20100818
  12. ACTEMRA [Suspect]
     Dosage: FORM: INJECTION
     Route: 041
     Dates: start: 20100914, end: 20100914
  13. ACTEMRA [Suspect]
     Dosage: FORM: INJECTION
     Route: 041
     Dates: start: 20101015, end: 20101015
  14. ACTEMRA [Suspect]
     Dosage: FORM: INJECTION
     Route: 041
     Dates: start: 20101108, end: 20101108
  15. ACTEMRA [Suspect]
     Dosage: FORM: INJECTION
     Route: 041
     Dates: start: 20101206, end: 20101206
  16. ACTEMRA [Suspect]
     Dosage: FORM: INJECTION
     Route: 041
     Dates: start: 20110107, end: 20110107
  17. ACTEMRA [Suspect]
     Dosage: FORM: INJECTION
     Route: 041
     Dates: start: 20110204, end: 20110204
  18. ACTEMRA [Suspect]
     Dosage: FORM: INJECTION
     Route: 041
     Dates: start: 20110301, end: 20110301
  19. ACTEMRA [Suspect]
     Dosage: FORM: INJECTION
     Route: 041
     Dates: start: 20110401, end: 20110426
  20. ACTEMRA [Suspect]
     Dosage: FORM: INJECTION
     Route: 041
     Dates: start: 20110907, end: 20111005
  21. ACTEMRA [Suspect]
     Dosage: FORM: INJECTION
     Route: 041
     Dates: start: 20111107, end: 20111107
  22. ACTEMRA [Suspect]
     Dosage: FORM: INJECTION
     Route: 041
     Dates: start: 20111005, end: 20111005
  23. ACTEMRA [Suspect]
     Route: 041
     Dates: start: 20111102, end: 20111102
  24. TACROLIMUS [Suspect]
     Indication: RHEUMATOID ARTHRITIS
     Dosage: DRUG REPORTED AS TACROLIMUS HYDRATE
     Route: 048
  25. PREDONINE [Concomitant]
     Route: 048

REACTIONS (2)
  - Hyponatraemia [Recovered/Resolved]
  - Nasopharyngitis [Recovered/Resolved]
